FAERS Safety Report 4804062-9 (Version None)
Quarter: 2005Q4

REPORT INFORMATION
  Report Type: 
  Country: None (occurrence: None)
  Receive Date: 20051018
  Receipt Date: 20051018
  Transmission Date: 20060501
  Serious: Yes (Other)
  Sender: FDA-Public Use
  Company Number: None

PATIENT
  Sex: Female
  Weight: 71.6683 kg

DRUGS (7)
  1. ZOCOR [Suspect]
     Indication: HYPERLIPIDAEMIA
     Dosage: 20 MG PO
     Route: 048
     Dates: start: 20050620, end: 20050910
  2. DILTIAZEM [Concomitant]
  3. COUMADIN [Concomitant]
  4. CARAFATE [Concomitant]
  5. LASIX [Concomitant]
  6. POTASSIUM CHLORIDE [Concomitant]
  7. ZOLOFT [Concomitant]

REACTIONS (2)
  - ASTHENIA [None]
  - MYALGIA [None]
